FAERS Safety Report 19655948 (Version 1)
Quarter: 2021Q3

REPORT INFORMATION
  Report Type: Spontaneous
  Country: DK (occurrence: DK)
  Receive Date: 20210804
  Receipt Date: 20210804
  Transmission Date: 20211014
  Serious: Yes (Other)
  Sender: FDA-Public Use
  Company Number: DK-MYLANLABS-2021M1046938

PATIENT
  Age: 30 Year
  Sex: Male

DRUGS (3)
  1. MIGEA [Concomitant]
     Indication: ANALGESIC THERAPY
     Dosage: UNK
  2. PARACETAMOL [Suspect]
     Active Substance: ACETAMINOPHEN
     Indication: ANALGESIC THERAPY
     Dosage: UNK
  3. BURANA [Concomitant]
     Active Substance: IBUPROFEN
     Indication: ANALGESIC THERAPY
     Dosage: UNK

REACTIONS (3)
  - Allergic reaction to excipient [Unknown]
  - Type I hypersensitivity [Unknown]
  - Urticaria [Unknown]
